FAERS Safety Report 4297274-7 (Version None)
Quarter: 2004Q1

REPORT INFORMATION
  Report Type: 
  Country: None (occurrence: None)
  Receive Date: 20040212
  Receipt Date: 20030113
  Transmission Date: 20041129
  Serious: Yes (Other)
  Sender: FDA-Public Use
  Company Number: A03200300072

PATIENT
  Age: 71 Year
  Sex: Female
  Weight: 50.8029 kg

DRUGS (4)
  1. AMBIEN [Suspect]
     Indication: INSOMNIA
     Dosage: 5 MG ONCE -ORAL
     Route: 048
     Dates: start: 20030110, end: 20030110
  2. PARACETAMOL [Concomitant]
  3. TAMOXIFEN [Concomitant]
  4. TRIMETHOPRM + SULFAMETHOXAZOLE [Concomitant]

REACTIONS (2)
  - DRUG INEFFECTIVE [None]
  - HALLUCINATION [None]
